FAERS Safety Report 8011320-6 (Version None)
Quarter: 2011Q4

REPORT INFORMATION
  Report Type: 
  Country: None (occurrence: None)
  Receive Date: 20111228
  Receipt Date: 20111220
  Transmission Date: 20120403
  Serious: Yes (Hospitalization)
  Sender: FDA-Public Use
  Company Number: FR-PFIZER INC-2011289088

PATIENT
  Age: 77 Year
  Sex: Female

DRUGS (28)
  1. ZOFRAN [Suspect]
     Indication: PREMEDICATION
     Dosage: UNK
     Route: 042
     Dates: start: 20100201, end: 20100401
  2. ZOFRAN [Suspect]
     Dosage: UNK
     Route: 042
     Dates: start: 20111109, end: 20111109
  3. TAXOL [Concomitant]
     Dosage: UNK
     Dates: start: 20100401, end: 20100501
  4. HERCEPTIN [Concomitant]
     Dosage: UNK
     Dates: start: 20100528, end: 20110608
  5. FOLFOX [Concomitant]
     Dosage: UNK
     Dates: start: 20110909
  6. SOLU-MEDROL [Suspect]
     Dosage: UNK
     Route: 042
     Dates: start: 20111022, end: 20111022
  7. FOLFOX [Concomitant]
     Dosage: UNK
     Dates: start: 20110925
  8. FLUOROURACIL [Concomitant]
     Dosage: UNK
     Dates: start: 20111109
  9. ZOFRAN [Suspect]
     Dosage: UNK
     Route: 042
     Dates: start: 20100608, end: 20100608
  10. ZOFRAN [Suspect]
     Dosage: UNK
     Route: 042
     Dates: start: 20111022, end: 20111022
  11. FOLFOX [Concomitant]
     Dosage: UNK
     Dates: start: 20111004
  12. ZOFRAN [Suspect]
     Dosage: UNK
     Route: 042
     Dates: start: 20100401, end: 20100501
  13. ZOFRAN [Suspect]
     Dosage: UNK
     Route: 042
     Dates: start: 20100528, end: 20100528
  14. TAXOL [Concomitant]
     Dosage: UNK
     Dates: start: 20100608, end: 20100608
  15. PACLITAXEL [Concomitant]
     Dosage: UNK
     Dates: start: 20100528, end: 20100608
  16. TRASTUZUMAB [Concomitant]
     Dosage: UNK
     Dates: start: 20100601, end: 20100701
  17. SOLU-MEDROL [Suspect]
     Indication: PREMEDICATION
     Dosage: UNK
     Route: 042
     Dates: start: 20100201, end: 20100401
  18. SOLU-MEDROL [Suspect]
     Dosage: UNK
     Route: 042
     Dates: start: 20100608, end: 20100608
  19. FEC [Concomitant]
     Dosage: UNK
     Dates: start: 20100201, end: 20100401
  20. TAXOL [Concomitant]
     Dosage: UNK
     Dates: start: 20100528, end: 20100528
  21. SOLU-MEDROL [Suspect]
     Dosage: UNK
     Dates: start: 20100401, end: 20100501
  22. SOLU-MEDROL [Suspect]
     Dosage: UNK
     Route: 042
     Dates: start: 20100528, end: 20100528
  23. SOLU-MEDROL [Suspect]
     Dosage: UNK
     Route: 042
     Dates: start: 20111109, end: 20111109
  24. HERCEPTIN [Concomitant]
     Dosage: UNK
     Dates: start: 20100608, end: 20100608
  25. HERCEPTIN [Concomitant]
     Dosage: UNK
     Dates: start: 20100601, end: 20100701
  26. FOLFOX [Concomitant]
     Dosage: UNK
     Dates: start: 20111022
  27. FOLFIRI [Concomitant]
     Dosage: UNK
     Dates: start: 20111109
  28. CAMPTOSAR [Concomitant]
     Dosage: UNK
     Dates: start: 20111109

REACTIONS (1)
  - CHILLS [None]
